FAERS Safety Report 10393627 (Version 1)
Quarter: 2014Q3

REPORT INFORMATION
  Report Type: Spontaneous
  Country: FR (occurrence: None)
  Receive Date: 20140818
  Receipt Date: 20140818
  Transmission Date: 20150326
  Serious: Yes (Hospitalization)
  Sender: FDA-Public Use
  Company Number: 2014CT000109

PATIENT
  Age: 21 Year

DRUGS (2)
  1. KORLYM [Suspect]
     Active Substance: MIFEPRISTONE
     Indication: ABORTION INDUCED
  2. MISOPROSTOL. [Suspect]
     Active Substance: MISOPROSTOL

REACTIONS (4)
  - Endometritis bacterial [None]
  - Immunosuppression [None]
  - Post procedural infection [None]
  - Retained products of conception [None]
